FAERS Safety Report 13375251 (Version 3)
Quarter: 2017Q2

REPORT INFORMATION
  Report Type: Spontaneous
  Country: US (occurrence: US)
  Receive Date: 20170327
  Receipt Date: 20170626
  Transmission Date: 20170830
  Serious: No
  Sender: FDA-Public Use
  Company Number: US-CLOVIS ONCOLOGY-CLO-2017-000136

PATIENT
  Sex: Female
  Weight: 68.27 kg

DRUGS (3)
  1. CLARITIN [Concomitant]
     Active Substance: LORATADINE
     Indication: PRODUCT USED FOR UNKNOWN INDICATION
     Dosage: 10 MG, QD
  2. RUBRACA [Suspect]
     Active Substance: RUCAPARIB CAMSYLATE
     Indication: OVARIAN CANCER
     Dosage: 600 MG, BID
     Route: 048
     Dates: start: 20170222, end: 20170516
  3. ARMOUR THYROID [Concomitant]
     Active Substance: THYROID, PORCINE
     Indication: PRODUCT USED FOR UNKNOWN INDICATION
     Dosage: 120 MG, UNK

REACTIONS (21)
  - Asthenia [Unknown]
  - Abdominal distension [Unknown]
  - Dyspepsia [Unknown]
  - Bile output increased [Unknown]
  - Weight decreased [Unknown]
  - Nausea [Unknown]
  - Fatigue [Recovered/Resolved]
  - Pyrexia [Unknown]
  - Renal function test abnormal [Unknown]
  - Abdominal discomfort [Unknown]
  - Diarrhoea [Unknown]
  - Eye swelling [Recovered/Resolved]
  - Gastritis [Unknown]
  - Hepatic enzyme increased [Unknown]
  - Hot flush [Unknown]
  - Dyspnoea [Recovered/Resolved]
  - Carbohydrate antigen 125 increased [Unknown]
  - Hypophagia [Unknown]
  - Sleep disorder [Unknown]
  - Hypersensitivity [Unknown]
  - Abdominal pain [Unknown]

NARRATIVE: CASE EVENT DATE: 2017
